FAERS Safety Report 4879135-5 (Version None)
Quarter: 2006Q1

REPORT INFORMATION
  Report Type: 
  Country: None (occurrence: None)
  Receive Date: 20060112
  Receipt Date: 20040810
  Transmission Date: 20060701
  Serious: Yes (Life-Threatening, Hospitalization)
  Sender: FDA-Public Use
  Company Number: IL-ROCHE-377238

PATIENT
  Age: 43 Year
  Sex: Male
  Weight: 99 kg

DRUGS (16)
  1. DACLIZUMAB [Suspect]
     Route: 042
     Dates: start: 20040721, end: 20040721
  2. DACLIZUMAB [Suspect]
     Route: 042
     Dates: end: 20040913
  3. MYCOPHENOLATE MOFETIL [Suspect]
     Route: 048
     Dates: start: 20040721
  4. MYCOPHENOLATE MOFETIL [Suspect]
     Route: 048
  5. SIROLIMUS [Suspect]
     Route: 048
     Dates: start: 20040724
  6. SIROLIMUS [Suspect]
     Route: 048
     Dates: start: 20040817
  7. SIROLIMUS [Suspect]
     Route: 048
  8. PREDNISONE [Suspect]
     Route: 048
     Dates: start: 20040725
  9. PREDNISONE [Suspect]
     Route: 048
     Dates: start: 20040927
  10. AMLODIPINE [Concomitant]
     Route: 048
     Dates: start: 20040726
  11. CARVEDILOL [Concomitant]
     Route: 048
     Dates: start: 20040723
  12. FUROSEMIDE [Concomitant]
     Route: 048
     Dates: start: 20040726
  13. HEPARIN [Concomitant]
     Route: 058
     Dates: start: 20040722
  14. INSULIN [Concomitant]
     Route: 058
     Dates: start: 20040721
  15. COTRIM [Concomitant]
  16. CANDESARTAN [Concomitant]
     Route: 048
     Dates: start: 20041108

REACTIONS (6)
  - ARTHRITIS [None]
  - KIDNEY TRANSPLANT REJECTION [None]
  - KLEBSIELLA SEPSIS [None]
  - PNEUMONIA [None]
  - PYREXIA [None]
  - SEPSIS [None]
